FAERS Safety Report 14254604 (Version 1)
Quarter: 2017Q4

REPORT INFORMATION
  Report Type: Spontaneous
  Country: US (occurrence: None)
  Receive Date: 20171205
  Receipt Date: 20171205
  Transmission Date: 20180321
  Serious: No
  Sender: FDA-Public Use
  Company Number: None

PATIENT
  Age: 59 Year
  Sex: Male

DRUGS (1)
  1. HARVONI [Suspect]
     Active Substance: LEDIPASVIR\SOFOSBUVIR
     Dosage: 1 TAB QD ORAL??10/31/2017 STILL ON 12/5/2017
     Route: 048
     Dates: start: 20171031

REACTIONS (1)
  - Nausea [None]

NARRATIVE: CASE EVENT DATE: 20171205
